FAERS Safety Report 18334476 (Version 1)
Quarter: 2020Q4

REPORT INFORMATION
  Report Type: Spontaneous
  Country: US (occurrence: US)
  Receive Date: 20201001
  Receipt Date: 20201001
  Transmission Date: 20210113
  Serious: No
  Sender: FDA-Public Use
  Company Number: None

PATIENT
  Age: 64 Year
  Sex: Female
  Weight: 50.8 kg

DRUGS (10)
  1. ACETAMINOPHEN. [Concomitant]
     Active Substance: ACETAMINOPHEN
     Dates: start: 20200926, end: 20200929
  2. ASPIRIN. [Concomitant]
     Active Substance: ASPIRIN
     Dates: start: 20200927, end: 20200930
  3. ENOXAPARIN [Concomitant]
     Active Substance: ENOXAPARIN
     Dates: start: 20200927, end: 20200930
  4. METOCLOPRAMIDE. [Concomitant]
     Active Substance: METOCLOPRAMIDE
     Dates: start: 20200927, end: 20200928
  5. ONDANSETRON [Concomitant]
     Active Substance: ONDANSETRON
     Dates: start: 20200926, end: 20200927
  6. POTASSIUM CHLORIDE. [Concomitant]
     Active Substance: POTASSIUM CHLORIDE
     Dates: start: 20200926, end: 20200930
  7. REMDESIVIR. [Suspect]
     Active Substance: REMDESIVIR
     Indication: COVID-19
     Dosage: ?          OTHER FREQUENCY:ONCE;?
     Route: 042
     Dates: start: 20200927, end: 20200927
  8. HEPARIN [Concomitant]
     Active Substance: HEPARIN SODIUM
     Dates: start: 20200926, end: 20200927
  9. PRAVASTATIN. [Concomitant]
     Active Substance: PRAVASTATIN
     Dates: start: 20200926, end: 20200929
  10. ERGOCALCIFEROL. [Concomitant]
     Active Substance: ERGOCALCIFEROL
     Dates: start: 20200927, end: 20200927

REACTIONS (5)
  - Vomiting [None]
  - Diarrhoea [None]
  - Sensory disturbance [None]
  - Feeling abnormal [None]
  - Nausea [None]

NARRATIVE: CASE EVENT DATE: 20200927
